FAERS Safety Report 5207465-6 (Version None)
Quarter: 2006Q4

REPORT INFORMATION
  Report Type: 
  Country: None (occurrence: None)
  Receive Date: 20061027
  Receipt Date: 20051104
  Transmission Date: 20070319
  Serious: Yes (Hospitalization)
  Sender: FDA-Public Use
  Company Number: HQWYE434807NOV05

PATIENT
  Age: 62 Year
  Sex: Female
  Weight: 70.37 kg

DRUGS (6)
  1. PREMARIN [Suspect]
     Indication: HOT FLUSH
     Dosage: SEE IMAGE
     Route: 048
     Dates: start: 19850101, end: 19860101
  2. PREMARIN [Suspect]
     Indication: HOT FLUSH
     Dosage: SEE IMAGE
     Route: 048
     Dates: end: 20041101
  3. PREMARIN [Suspect]
     Indication: HOT FLUSH
     Dosage: SEE IMAGE
     Route: 048
     Dates: start: 20041101
  4. PROVERA [Concomitant]
  5. LISINOPRIL [Concomitant]
  6. LEVOTHROID [Concomitant]

REACTIONS (3)
  - BACK DISORDER [None]
  - SKIN ATROPHY [None]
  - VAGINAL HAEMORRHAGE [None]
